FAERS Safety Report 9225501 (Version 1)
Quarter: 2013Q2

REPORT INFORMATION
  Report Type: Spontaneous
  Country: FR (occurrence: FR)
  Receive Date: 20130411
  Receipt Date: 20130411
  Transmission Date: 20140414
  Serious: Yes (Hospitalization, Other)
  Sender: FDA-Public Use
  Company Number: FR-PFIZER INC-2013110993

PATIENT
  Age: 91 Year
  Sex: Female

DRUGS (9)
  1. ALDACTONE [Suspect]
     Dosage: 37.5 MG, 1X/DAY
     Route: 048
     Dates: end: 20130214
  2. VALSARTAN [Suspect]
     Dosage: 80 MG, 1X/DAY
     Route: 048
     Dates: end: 20130214
  3. CARDENSIEL [Concomitant]
     Dosage: 2.5 MG, 1X/DAY
     Route: 048
  4. EFFIENT [Concomitant]
     Dosage: 5 MG, 1X/DAY
     Route: 048
  5. KARDEGIC [Concomitant]
     Dosage: 75 MG, 1X/DAY
     Route: 048
  6. PRAVASTATIN SODIUM [Concomitant]
     Dosage: 20 MG, 1X/DAY
     Route: 048
  7. FLUVOXAMINE MALEATE [Concomitant]
     Indication: DEPRESSION
     Dosage: 100 MG, 1X/DAY
     Route: 048
  8. LEVOTHYROX [Concomitant]
     Dosage: 50 UG, 1X/DAY
     Route: 048
  9. CREON [Concomitant]
     Dosage: UNK
     Route: 048

REACTIONS (4)
  - Hyperkalaemia [Recovered/Resolved]
  - Atrioventricular block [Recovered/Resolved]
  - Presyncope [Recovered/Resolved]
  - Hyponatraemia [Recovered/Resolved]
